FAERS Safety Report 6779865-4 (Version None)
Quarter: 2010Q2

REPORT INFORMATION
  Report Type: 
  Country: None (occurrence: None)
  Receive Date: 20100618
  Receipt Date: 20100608
  Transmission Date: 20101027
  Serious: Yes (Disabling)
  Sender: FDA-Public Use
  Company Number: PHHY2010US29526

PATIENT
  Sex: Female

DRUGS (3)
  1. EXTAVIA [Suspect]
     Indication: MULTIPLE SCLEROSIS
     Dosage: 25 MG, QOD
     Route: 058
     Dates: start: 20100315
  2. MULTI-VITAMINS [Concomitant]
     Dosage: 1 DF, QD
  3. VITAMIN C [Concomitant]
     Dosage: 2 DF, QD

REACTIONS (4)
  - DECREASED APPETITE [None]
  - ORGASM ABNORMAL [None]
  - SKIN BURNING SENSATION [None]
  - VISUAL IMPAIRMENT [None]
